FAERS Safety Report 23271554 (Version 1)
Quarter: 2023Q4

REPORT INFORMATION
  Report Type: Spontaneous
  Country: AU (occurrence: AU)
  Receive Date: 20231207
  Receipt Date: 20231207
  Transmission Date: 20240110
  Serious: Yes (Hospitalization, Other)
  Sender: FDA-Public Use
  Company Number: AU-002147023-NVSC2023AU256963

PATIENT
  Age: 84 Year
  Sex: Female

DRUGS (1)
  1. FEMARA [Suspect]
     Active Substance: LETROZOLE
     Indication: Breast cancer
     Dosage: UNK (HAD BEEN ON FEMARA FOR 4 YEARS)
     Route: 065

REACTIONS (3)
  - Fall [Unknown]
  - Dementia [Unknown]
  - Limb discomfort [Unknown]
